FAERS Safety Report 14274661 (Version 1)
Quarter: 2017Q4

REPORT INFORMATION
  Report Type: Spontaneous
  Country: US (occurrence: US)
  Receive Date: 20171212
  Receipt Date: 20171212
  Transmission Date: 20180321
  Serious: No
  Sender: FDA-Public Use
  Company Number: US-ELI_LILLY_AND_COMPANY-US201712002708

PATIENT
  Age: 56 Year
  Sex: Female

DRUGS (2)
  1. LANTUS [Concomitant]
     Active Substance: INSULIN GLARGINE
     Indication: PRODUCT USED FOR UNKNOWN INDICATION
  2. TRULICITY [Suspect]
     Active Substance: DULAGLUTIDE
     Indication: PRODUCT USED FOR UNKNOWN INDICATION
     Dosage: 0.75 MG, UNKNOWN
     Route: 065
     Dates: start: 20170901

REACTIONS (6)
  - Oropharyngeal pain [Unknown]
  - Decreased appetite [Unknown]
  - Nasopharyngitis [Unknown]
  - Drug ineffective [Unknown]
  - Disturbance in attention [Unknown]
  - Nausea [Unknown]

NARRATIVE: CASE EVENT DATE: 20170903
